FAERS Safety Report 7425642-0 (Version None)
Quarter: 2011Q2

REPORT INFORMATION
  Report Type: 
  Country: None (occurrence: None)
  Receive Date: 20110412
  Receipt Date: 20110328
  Transmission Date: 20111010
  Serious: Yes (Hospitalization)
  Sender: FDA-Public Use
  Company Number: 1000019862

PATIENT
  Age: 59 Year
  Sex: Male

DRUGS (6)
  1. ESCITALOPRAM OXALATE [Suspect]
     Indication: DEPRESSION
     Dosage: 10 MG (10 MG,1 IN 1 D), ORAL
     Route: 048
     Dates: start: 20101001, end: 20101215
  2. COVERSYL (PERINDOPRIL) (TABLETS) (PERINDOPRIL) [Concomitant]
  3. KARDEGIC (ACETYLSALICYLATE LYSINE) (POWDER) (ACETYLSALICYLATE LYSINE) [Concomitant]
  4. TAHOR (ATORVASTATIN CALCIUM) (TABLETS) (ATORVASTATIN CALCIUM) [Concomitant]
  5. PLAVIX (CLOPIDOGREL) (TABLETS) (CLOPIDOGREL) [Concomitant]
  6. PROCORALAN (IVABRADINE HYDROCHLORIDE) (TABLETS) (IVABRADINE HYDROCHLOR [Concomitant]

REACTIONS (3)
  - DYSGEUSIA [None]
  - DYSPHAGIA [None]
  - AMNESTIC DISORDER [None]
